FAERS Safety Report 8596119-4 (Version None)
Quarter: 2012Q3

REPORT INFORMATION
  Report Type: 
  Country: None (occurrence: None)
  Receive Date: 20120815
  Receipt Date: 20120809
  Transmission Date: 20120928
  Serious: Yes (Death, Life-Threatening)
  Sender: FDA-Public Use
  Company Number: TR-ROXANE LABORATORIES, INC.-2012-RO-01681RO

PATIENT
  Age: 52 Year
  Sex: Male

DRUGS (6)
  1. RAMIPRIL [Suspect]
  2. CARVEDILOL [Suspect]
  3. DENAN [Suspect]
  4. PERSANTINE [Suspect]
  5. ASPIRIN [Suspect]
  6. LITHIUM CARBONATE [Suspect]

REACTIONS (2)
  - TOXICITY TO VARIOUS AGENTS [None]
  - DEATH [None]
